FAERS Safety Report 9458043 (Version 1)
Quarter: 2013Q3

REPORT INFORMATION
  Report Type: Spontaneous
  Country: BR (occurrence: BR)
  Receive Date: 20130814
  Receipt Date: 20130814
  Transmission Date: 20140515
  Serious: Yes (Other)
  Sender: FDA-Public Use
  Company Number: BR-SANOFI-AVENTIS-2013SA078928

PATIENT
  Age: 59 Year
  Sex: Female

DRUGS (10)
  1. RIFAMPICIN [Suspect]
     Indication: TUBERCULOUS PLEURISY
     Route: 065
     Dates: start: 2010, end: 20101015
  2. WARFARIN SODIUM [Interacting]
     Indication: ATRIAL FIBRILLATION
     Route: 065
     Dates: start: 200905
  3. WARFARIN SODIUM [Interacting]
     Indication: ATRIAL FIBRILLATION
     Dosage: DOSE SEQUENTIALLY INCREASED FOR 3 MONTHS
     Route: 065
     Dates: start: 201003
  4. WARFARIN SODIUM [Interacting]
     Indication: ATRIAL FIBRILLATION
     Dosage: DOSE DOUBLED
     Route: 065
  5. WARFARIN SODIUM [Interacting]
     Indication: ATRIAL FIBRILLATION
     Dosage: DOSE REDUCED
     Route: 065
  6. ISONIAZID [Concomitant]
     Indication: TUBERCULOUS PLEURISY
     Dates: start: 2010, end: 20101015
  7. PYRAZINAMIDE [Concomitant]
     Indication: TUBERCULOUS PLEURISY
     Dates: start: 2010, end: 2010
  8. FERROUS SULFATE [Concomitant]
  9. HYDROCHLOROTHIAZIDE [Concomitant]
  10. ENALAPRIL [Concomitant]

REACTIONS (3)
  - Haematuria [Recovered/Resolved]
  - Drug interaction [Unknown]
  - International normalised ratio increased [Recovered/Resolved]
